FAERS Safety Report 21822023 (Version 1)
Quarter: 2023Q1

REPORT INFORMATION
  Report Type: Other
  Country: US (occurrence: None)
  Receive Date: 20230105
  Receipt Date: 20230105
  Transmission Date: 20230418
  Serious: Yes (Hospitalization)
  Sender: FDA-Public Use
  Company Number: US-ROCHE-3256168

PATIENT
  Age: 48 Year
  Sex: Male

DRUGS (6)
  1. RITUXIMAB [Suspect]
     Active Substance: RITUXIMAB
     Indication: Chronic lymphocytic leukaemia
     Route: 065
  2. VENETOCLAX [Suspect]
     Active Substance: VENETOCLAX
     Indication: Chronic lymphocytic leukaemia
     Route: 065
     Dates: start: 202101
  3. UBLITUXIMAB [Suspect]
     Active Substance: UBLITUXIMAB
     Indication: Chronic lymphocytic leukaemia
     Route: 065
     Dates: start: 202101
  4. UMBRALISIB [Suspect]
     Active Substance: UMBRALISIB
     Indication: Chronic lymphocytic leukaemia
     Route: 065
     Dates: start: 202101
  5. BAMLANIVIMAB [Concomitant]
     Active Substance: BAMLANIVIMAB
     Dates: start: 20210305
  6. REGEN-COV [Concomitant]
     Active Substance: CASIRIVIMAB\IMDEVIMAB

REACTIONS (1)
  - COVID-19 [Recovered/Resolved]
